FAERS Safety Report 8971296 (Version 1)
Quarter: 2012Q4

REPORT INFORMATION
  Report Type: 
  Country: UA (occurrence: UA)
  Receive Date: 20121218
  Receipt Date: 20121218
  Transmission Date: 20130627
  Serious: Yes (Other)
  Sender: FDA-Public Use
  Company Number: PHHY2012UA115996

PATIENT
  Age: 51 Year
  Sex: Female

DRUGS (4)
  1. RETARPEN [Suspect]
     Indication: RHEUMATIC HEART DISEASE
     Dosage: 2400000 IU,once/3 weeks
     Route: 048
     Dates: start: 20091027
  2. OMEZ D [Concomitant]
  3. DE-NOL [Concomitant]
  4. QUAMATEL [Concomitant]

REACTIONS (4)
  - Syncope [Recovered/Resolved]
  - Dizziness [Recovered/Resolved]
  - Blood pressure decreased [Recovered/Resolved]
  - Cold sweat [Recovered/Resolved]
